FAERS Safety Report 7996424-6 (Version None)
Quarter: 2011Q4

REPORT INFORMATION
  Report Type: 
  Country: None (occurrence: None)
  Receive Date: 20111220
  Receipt Date: 20111205
  Transmission Date: 20120403
  Serious: Yes (Hospitalization)
  Sender: FDA-Public Use
  Company Number: US-WATSON-2011-21817

PATIENT
  Age: 59 Year
  Sex: Female
  Weight: 100 kg

DRUGS (4)
  1. MEPERIDINE HCL [Suspect]
     Indication: HUMERUS FRACTURE
     Dosage: 50 MG, SINGLE
     Route: 042
  2. PROMETHAZINE [Suspect]
     Indication: SPINAL FRACTURE
  3. PROMETHAZINE [Suspect]
     Indication: HUMERUS FRACTURE
     Dosage: 25 MG, SINGLE
     Route: 042
  4. MEPERIDINE HCL [Suspect]
     Indication: SPINAL FRACTURE

REACTIONS (9)
  - PICKWICKIAN SYNDROME [None]
  - SOMNOLENCE [None]
  - HYPERCAPNIA [None]
  - RESPIRATORY FAILURE [None]
  - ATELECTASIS [None]
  - SINUS TACHYCARDIA [None]
  - RESPIRATORY ACIDOSIS [None]
  - BUNDLE BRANCH BLOCK RIGHT [None]
  - METABOLIC ALKALOSIS [None]
